FAERS Safety Report 10220075 (Version 1)
Quarter: 2014Q2

REPORT INFORMATION
  Report Type: Other
  Country: FR (occurrence: FR)
  Receive Date: 20140605
  Receipt Date: 20140605
  Transmission Date: 20141212
  Serious: Yes (Hospitalization)
  Sender: FDA-Public Use
  Company Number: FR-CUBIST PHARMACEUTICAL, INC.-2014CBST000783

PATIENT
  Sex: 0

DRUGS (2)
  1. CUBICIN [Suspect]
     Indication: STAPHYLOCOCCAL SEPSIS
     Dosage: 850 MG, UNK
     Route: 042
     Dates: start: 20140425, end: 20140509
  2. CUBICIN [Suspect]
     Indication: OFF LABEL USE

REACTIONS (3)
  - Hyperthermia [Recovered/Resolved]
  - Rash [Recovered/Resolved]
  - Eosinophilia [Recovered/Resolved]
